FAERS Safety Report 25469546 (Version 1)
Quarter: 2025Q2

REPORT INFORMATION
  Report Type: Spontaneous
  Country: US (occurrence: None)
  Receive Date: 20250623
  Receipt Date: 20250623
  Transmission Date: 20250716
  Serious: Yes (Other)
  Sender: FDA-CTU
  Company Number: None

PATIENT
  Age: 23 Year
  Sex: Female
  Weight: 74.25 kg

DRUGS (2)
  1. NITROFURANTOIN MONOHYDRATE MACROCRYSTALS [Suspect]
     Active Substance: NITROFURANTOIN\NITROFURANTOIN MONOHYDRATE
     Indication: Urinary tract infection
     Dates: start: 20250621, end: 20250622
  2. AZO cranberry supplements [Concomitant]

REACTIONS (5)
  - Anxiety [None]
  - Suicidal ideation [None]
  - Crying [None]
  - Paraesthesia [None]
  - Self-injurious ideation [None]

NARRATIVE: CASE EVENT DATE: 20250622
